FAERS Safety Report 8248930-7 (Version None)
Quarter: 2012Q2

REPORT INFORMATION
  Report Type: 
  Country: None (occurrence: None)
  Receive Date: 20120402
  Receipt Date: 20120319
  Transmission Date: 20120825
  Serious: Yes (Life-Threatening)
  Sender: FDA-Public Use
  Company Number: TR-BRISTOL-MYERS SQUIBB COMPANY-16464034

PATIENT
  Age: 9 Year

DRUGS (4)
  1. GRANISETRON [Concomitant]
     Indication: PROPHYLAXIS OF NAUSEA AND VOMITING
     Route: 042
  2. CARBOPLATIN [Suspect]
     Indication: GLIOMA
     Dosage: INDUCTION COURSE:175MG/M2/WK FOR 4 WKS AND 2 WEEKS REST
     Route: 042
  3. VINCRISTINE [Concomitant]
     Indication: GLIOMA
     Route: 042
  4. TRIMETHOPRIM + SULFAMETHOXAZOLE [Concomitant]
     Indication: ANTIFUNGAL PROPHYLAXIS

REACTIONS (1)
  - ANAPHYLACTIC REACTION [None]
